FAERS Safety Report 19211823 (Version 1)
Quarter: 2021Q2

REPORT INFORMATION
  Report Type: Report from Study
  Country: US (occurrence: US)
  Receive Date: 20210504
  Receipt Date: 20210504
  Transmission Date: 20210717
  Serious: Yes (Hospitalization)
  Sender: FDA-Public Use
  Company Number: US-ACCORD-224290

PATIENT
  Sex: Female
  Weight: 90.72 kg

DRUGS (4)
  1. DEPAKOTE [Concomitant]
     Active Substance: DIVALPROEX SODIUM
     Dosage: 2 TABLETS AT BEDTIME
     Route: 048
  2. BENZATROPINE [Concomitant]
     Active Substance: BENZTROPINE
     Dosage: 3 TIMES DAILY
  3. CLOZAPINE ACCORD [Suspect]
     Active Substance: CLOZAPINE
     Indication: SCHIZOPHRENIA
     Dosage: PER DAY, 100MG/TABLETS IN AM, RECEIVED DOSE OF 200MG ON 25?MAR?2021
     Route: 048
  4. OLANZAPINE. [Concomitant]
     Active Substance: OLANZAPINE
     Dosage: BEDTIME

REACTIONS (6)
  - Fall [Unknown]
  - Psychotic disorder [Not Recovered/Not Resolved]
  - Upper limb fracture [Not Recovered/Not Resolved]
  - Agitation [Not Recovered/Not Resolved]
  - Aphasia [Not Recovered/Not Resolved]
  - Product dose omission issue [Unknown]
